FAERS Safety Report 10397398 (Version 10)
Quarter: 2015Q4

REPORT INFORMATION
  Report Type: Spontaneous
  Country: US (occurrence: US)
  Receive Date: 20140820
  Receipt Date: 20151103
  Transmission Date: 20160304
  Serious: Yes (Life-Threatening, Other)
  Sender: FDA-Public Use
  Company Number: US-ELI_LILLY_AND_COMPANY-US201408004667

PATIENT
  Age: 72 Year
  Sex: Female

DRUGS (15)
  1. CYMBALTA [Suspect]
     Active Substance: DULOXETINE HYDROCHLORIDE
     Indication: PAIN
     Dosage: 1 DF, UNKNOWN
     Route: 065
     Dates: start: 20111021, end: 201303
  2. HYDROCHLOROTHIAZIDE. [Concomitant]
     Active Substance: HYDROCHLOROTHIAZIDE
  3. REQUIP [Concomitant]
     Active Substance: ROPINIROLE HYDROCHLORIDE
     Route: 065
  4. COREG [Concomitant]
     Active Substance: CARVEDILOL
  5. SINEMET [Concomitant]
     Active Substance: CARBIDOPA\LEVODOPA
  6. PLAVIX [Concomitant]
     Active Substance: CLOPIDOGREL BISULFATE
  7. CLONAZEPAM. [Concomitant]
     Active Substance: CLONAZEPAM
  8. VANIQA                             /00936001/ [Concomitant]
  9. SIMVASTATIN. [Concomitant]
     Active Substance: SIMVASTATIN
  10. TOPAMAX [Concomitant]
     Active Substance: TOPIRAMATE
     Dosage: UNK
  11. ASPIRIN                            /00002701/ [Concomitant]
     Active Substance: ASPIRIN
  12. LISINOPRIL. [Concomitant]
     Active Substance: LISINOPRIL
  13. CYMBALTA [Suspect]
     Active Substance: DULOXETINE HYDROCHLORIDE
     Indication: DEPRESSION
  14. METFORMIN [Concomitant]
     Active Substance: METFORMIN HYDROCHLORIDE
  15. ALDACTONE [Concomitant]
     Active Substance: SPIRONOLACTONE
     Dosage: UNK
     Route: 065

REACTIONS (66)
  - Irritable bowel syndrome [Unknown]
  - Insomnia [Recovered/Resolved]
  - Irritability [Unknown]
  - Nausea [Unknown]
  - Erythema [Unknown]
  - Tinnitus [Unknown]
  - Hypoaesthesia [Unknown]
  - Pollakiuria [Unknown]
  - Paraesthesia [Not Recovered/Not Resolved]
  - Hyperhidrosis [Unknown]
  - Pruritus [Unknown]
  - Dry eye [Unknown]
  - Seizure [Unknown]
  - Weight increased [Unknown]
  - Arthralgia [Unknown]
  - Drug withdrawal syndrome [Unknown]
  - Communication disorder [Unknown]
  - Pain in extremity [Unknown]
  - Muscle spasms [Unknown]
  - Tremor [Unknown]
  - Tinnitus [Unknown]
  - Dizziness [Unknown]
  - Nocturia [Unknown]
  - Peripheral swelling [Not Recovered/Not Resolved]
  - Rash [Unknown]
  - Dyspnoea [Recovered/Resolved]
  - Cold sweat [Recovered/Resolved]
  - Headache [Unknown]
  - Skin cancer [Unknown]
  - Urinary incontinence [Recovered/Resolved]
  - Atrophic vulvovaginitis [Recovered/Resolved]
  - Pain [Not Recovered/Not Resolved]
  - Malaise [Unknown]
  - Night sweats [Unknown]
  - Oral pain [Unknown]
  - Palpitations [Recovered/Resolved]
  - Aphthous ulcer [Unknown]
  - Blood glucose fluctuation [Unknown]
  - Nightmare [Unknown]
  - Somnolence [Unknown]
  - Feeling jittery [Unknown]
  - Asthenia [Unknown]
  - Micturition urgency [Unknown]
  - Chest pain [Recovered/Resolved]
  - Crying [Unknown]
  - Blood cholesterol increased [Unknown]
  - Contusion [Unknown]
  - Fatigue [Unknown]
  - Dyspepsia [Unknown]
  - Hypotension [Unknown]
  - Blood glucose increased [Recovered/Resolved]
  - Memory impairment [Unknown]
  - Incontinence [Not Recovered/Not Resolved]
  - Pain [Unknown]
  - Coordination abnormal [Unknown]
  - Feeling abnormal [Unknown]
  - Fall [Unknown]
  - Dyspnoea [Unknown]
  - Abdominal pain lower [Unknown]
  - Nervousness [Unknown]
  - Confusional state [Unknown]
  - Pollakiuria [Unknown]
  - Diabetes mellitus [Unknown]
  - Sluggishness [Unknown]
  - Confusional state [Unknown]
  - Drug ineffective [Unknown]

NARRATIVE: CASE EVENT DATE: 201111
